FAERS Safety Report 24420065 (Version 2)
Quarter: 2024Q4

REPORT INFORMATION
  Report Type: Report from Study
  Country: US (occurrence: US)
  Receive Date: 20241010
  Receipt Date: 20241018
  Transmission Date: 20250115
  Serious: No
  Sender: ROCHE
  Company Number: US-ROCHE-3524287

PATIENT
  Age: 2 Year
  Sex: Male

DRUGS (1)
  1. CATHFLO ACTIVASE [Suspect]
     Active Substance: ALTEPLASE
     Indication: Status epilepticus
     Dosage: 2MG X 3-6MG VIAL, ON 29/JAN/2024
     Route: 065
     Dates: start: 20240129

REACTIONS (2)
  - Off label use [Unknown]
  - No adverse event [Unknown]
